FAERS Safety Report 5318129-2 (Version None)
Quarter: 2007Q2

REPORT INFORMATION
  Report Type: 
  Country: None (occurrence: None)
  Receive Date: 20070507
  Receipt Date: 20070427
  Transmission Date: 20071010
  Serious: Yes (Other)
  Sender: FDA-Public Use
  Company Number: JP-ROCHE-490555

PATIENT
  Age: 12 Year
  Sex: Female
  Weight: 40 kg

DRUGS (1)
  1. TAMIFLU [Suspect]
     Route: 048
     Dates: start: 20070317, end: 20070322

REACTIONS (1)
  - ABNORMAL BEHAVIOUR [None]
